FAERS Safety Report 11258363 (Version 1)
Quarter: 2015Q3

REPORT INFORMATION
  Report Type: Spontaneous
  Country: US (occurrence: None)
  Receive Date: 20150709
  Receipt Date: 20150709
  Transmission Date: 20151125
  Serious: Yes (Hospitalization)
  Sender: FDA-Public Use
  Company Number: None

PATIENT
  Age: 18 Year
  Sex: Male
  Weight: 95 kg

DRUGS (6)
  1. ONCASPAR [Suspect]
     Active Substance: PEGASPARGASE
     Dates: start: 20150616
  2. DAUNORUBICIN [Suspect]
     Active Substance: DAUNORUBICIN
     Dates: end: 20150626
  3. PREDNISONE. [Suspect]
     Active Substance: PREDNISONE
     Dates: end: 20150629
  4. CYTARABINE. [Suspect]
     Active Substance: CYTARABINE
     Dates: end: 20150612
  5. METHOTREXATE [Suspect]
     Active Substance: METHOTREXATE
     Dates: end: 20150619
  6. VINCRISTINE SULFATE. [Suspect]
     Active Substance: VINCRISTINE SULFATE
     Dates: end: 20150626

REACTIONS (7)
  - Staphylococcal infection [None]
  - Pyrexia [None]
  - Ocular hyperaemia [None]
  - Escherichia infection [None]
  - Device related infection [None]
  - Candiduria [None]
  - Eye infection fungal [None]

NARRATIVE: CASE EVENT DATE: 20150629
